FAERS Safety Report 9540704 (Version 1)
Quarter: 2013Q3

REPORT INFORMATION
  Report Type: Spontaneous
  Country: DE (occurrence: DE)
  Receive Date: 20130920
  Receipt Date: 20130920
  Transmission Date: 20140515
  Serious: Yes (Other)
  Sender: FDA-Public Use
  Company Number: DE-ELI_LILLY_AND_COMPANY-DE201309002904

PATIENT
  Age: 71 Year
  Sex: Female
  Weight: 70 kg

DRUGS (6)
  1. CYMBALTA [Suspect]
     Dosage: UNK, UNKNOWN
     Route: 048
  2. MELPERON [Suspect]
     Dosage: 2.5 ML, UNKNOWN
     Route: 065
  3. MELPERON [Suspect]
     Dosage: 25 ML, UNKNOWN
     Route: 065
  4. SULPIRID [Concomitant]
     Dosage: UNK, UNKNOWN
     Route: 065
  5. JANUVIA [Concomitant]
     Dosage: UNK, UNKNOWN
     Route: 065
  6. PANTOPRAZOL [Concomitant]
     Dosage: UNK, UNKNOWN
     Route: 065

REACTIONS (7)
  - Hypotension [Unknown]
  - Dysarthria [Unknown]
  - Pallor [Unknown]
  - Cyanosis [Unknown]
  - Overdose [Unknown]
  - Somnolence [Unknown]
  - Dizziness [Unknown]
